FAERS Safety Report 6857941-5 (Version None)
Quarter: 2010Q3

REPORT INFORMATION
  Report Type: 
  Country: None (occurrence: None)
  Receive Date: 20100714
  Receipt Date: 20100709
  Transmission Date: 20110219
  Serious: Yes (Death)
  Sender: FDA-Public Use
  Company Number: 2010SP035531

PATIENT
  Age: 35 Year
  Sex: Male
  Weight: 69 kg

DRUGS (11)
  1. REMERON [Suspect]
     Indication: DEPRESSION
     Dosage: 15MG; PO, 22.5MG;PO, 30MG; PO, 45MG; PO,
     Route: 048
     Dates: start: 20100101, end: 20100101
  2. REMERON [Suspect]
     Indication: DEPRESSION
     Dosage: 15MG; PO, 22.5MG;PO, 30MG; PO, 45MG; PO,
     Route: 048
     Dates: start: 20100423, end: 20100429
  3. REMERON [Suspect]
     Indication: DEPRESSION
     Dosage: 15MG; PO, 22.5MG;PO, 30MG; PO, 45MG; PO,
     Route: 048
     Dates: start: 20100430, end: 20100505
  4. REMERON [Suspect]
     Indication: DEPRESSION
     Dosage: 15MG; PO, 22.5MG;PO, 30MG; PO, 45MG; PO,
     Route: 048
     Dates: start: 20100506, end: 20100507
  5. HALCION [Concomitant]
  6. DEPAS [Concomitant]
  7. JZOLOFT (SERTRALINE HYDROCHLORIDE) [Concomitant]
  8. DEZOLAM [Concomitant]
  9. MINZAIN [Concomitant]
  10. ESTAZOLAM [Suspect]
  11. CALMDOWN [Concomitant]

REACTIONS (9)
  - ABNORMAL BEHAVIOUR [None]
  - ADJUSTMENT DISORDER [None]
  - ANXIETY [None]
  - COMPLETED SUICIDE [None]
  - INSOMNIA [None]
  - IRRITABILITY [None]
  - PARTNER STRESS [None]
  - PERSONALITY DISORDER [None]
  - SUICIDAL IDEATION [None]
